FAERS Safety Report 7163518-7 (Version None)
Quarter: 2010Q4

REPORT INFORMATION
  Report Type: 
  Country: None (occurrence: None)
  Receive Date: 20101215
  Receipt Date: 20100505
  Transmission Date: 20110411
  Serious: Yes (Hospitalization)
  Sender: FDA-Public Use
  Company Number: ZA-PFIZER INC-2010057560

PATIENT
  Age: 52 Year
  Sex: Female
  Weight: 55 kg

DRUGS (2)
  1. LYRICA [Suspect]
     Indication: PELVIC INFLAMMATORY DISEASE
     Dosage: 75 MG, 2X/DAY
     Route: 048
     Dates: start: 20091101, end: 20100301
  2. CELEBREX [Suspect]
     Dosage: 75 MG, 2X/DAY
     Route: 048
     Dates: start: 20091101, end: 20100301

REACTIONS (2)
  - BLOOD PRESSURE INCREASED [None]
  - DIZZINESS [None]
